APPROVED DRUG PRODUCT: MEPERIDINE HYDROCHLORIDE
Active Ingredient: MEPERIDINE HYDROCHLORIDE
Strength: 50MG/5ML
Dosage Form/Route: SYRUP;ORAL
Application: A088744 | Product #001
Applicant: HIKMA PHARMACEUTICALS USA INC
Approved: Jan 30, 1985 | RLD: No | RS: Yes | Type: RX